FAERS Safety Report 21661034 (Version 3)
Quarter: 2022Q4

REPORT INFORMATION
  Report Type: Spontaneous
  Country: AU (occurrence: AU)
  Receive Date: 20221130
  Receipt Date: 20221223
  Transmission Date: 20230113
  Serious: No
  Sender: FDA-Public Use
  Company Number: AU-JNJFOC-20221120966

PATIENT
  Sex: Female

DRUGS (1)
  1. SIMPONI [Suspect]
     Active Substance: GOLIMUMAB
     Indication: Product used for unknown indication
     Dosage: USING SIMPONI FOR ABOUT 12 MONTHS?STRENGTH: 50.00 MG / 0.50 ML
     Route: 058

REACTIONS (3)
  - Product container seal issue [Unknown]
  - Device defective [Unknown]
  - Poor quality product administered [Unknown]

NARRATIVE: CASE EVENT DATE: 20221108
